FAERS Safety Report 5653286-X (Version None)
Quarter: 2008Q1

REPORT INFORMATION
  Report Type: 
  Country: None (occurrence: None)
  Receive Date: 20080306
  Receipt Date: 20080225
  Transmission Date: 20080703
  Serious: Yes (Death, Hospitalization)
  Sender: FDA-Public Use
  Company Number: US-KINGPHARMUSA00001-K200800240

PATIENT

DRUGS (10)
  1. ALTACE [Suspect]
     Indication: HYPERTENSION
     Dosage: EVERY DAY TABLETS, QD
     Route: 048
     Dates: start: 20030419, end: 20030501
  2. LASIX [Suspect]
     Indication: OEDEMA
     Dosage: 80 MG, QD
     Route: 048
     Dates: start: 20030408, end: 20030501
  3. ALLOPURINOL [Suspect]
     Indication: HYPERURICAEMIA
     Dosage: 300 MG, QD
     Route: 048
     Dates: start: 20030326, end: 20030430
  4. BRONCHORETARD [Suspect]
     Indication: CHRONIC OBSTRUCTIVE PULMONARY DISEASE
     Dosage: 200 MG, QD
     Route: 048
     Dates: start: 20030319, end: 20030501
  5. DECORTIN [Suspect]
     Indication: CHRONIC OBSTRUCTIVE PULMONARY DISEASE
     Dosage: UNK, QD
     Route: 048
     Dates: start: 20030319, end: 20030501
  6. EUNERPAN [Suspect]
     Indication: SLEEP DISORDER
     Dosage: 25 MG, QD
     Route: 048
     Dates: start: 20030319, end: 20030501
  7. BERODUAL [Suspect]
     Indication: CHRONIC OBSTRUCTIVE PULMONARY DISEASE
     Dosage: 4X2 HUB, QD
     Dates: start: 20030319, end: 20030501
  8. SYMBICORT [Suspect]
     Indication: CHRONIC OBSTRUCTIVE PULMONARY DISEASE
     Dosage: 2X2 HUB, QD
     Dates: start: 20030319, end: 20030501
  9. CLEXANE [Concomitant]
     Indication: THROMBOSIS PROPHYLAXIS
     Dosage: UNK, QD
     Route: 058
     Dates: start: 20030320, end: 20030415
  10. ZYLORIC /00003301/ [Concomitant]
     Indication: HYPERURICAEMIA
     Dosage: UNK, SINGLE
     Route: 048
     Dates: start: 20030501, end: 20030501

REACTIONS (11)
  - BLISTER [None]
  - CONJUNCTIVITIS [None]
  - ERYTHEMA [None]
  - LIP EROSION [None]
  - MUCOUS MEMBRANE DISORDER [None]
  - PAIN OF SKIN [None]
  - PRURITUS [None]
  - RASH GENERALISED [None]
  - STEVENS-JOHNSON SYNDROME [None]
  - SUNBURN [None]
  - TOXIC EPIDERMAL NECROLYSIS [None]
